FAERS Safety Report 6763162-7 (Version None)
Quarter: 2010Q2

REPORT INFORMATION
  Report Type: 
  Country: None (occurrence: None)
  Receive Date: 20100608
  Receipt Date: 20100608
  Transmission Date: 20101027
  Serious: No
  Sender: FDA-Public Use
  Company Number: None

PATIENT
  Sex: Male
  Weight: 92.9874 kg

DRUGS (1)
  1. NORVIR [Suspect]

REACTIONS (3)
  - DRUG INTOLERANCE [None]
  - DYSPEPSIA [None]
  - UNEVALUABLE EVENT [None]
